FAERS Safety Report 4379918-4 (Version None)
Quarter: 2004Q2

REPORT INFORMATION
  Report Type: 
  Country: None (occurrence: None)
  Receive Date: 20040615
  Receipt Date: 20040609
  Transmission Date: 20050107
  Serious: Yes (Other)
  Sender: FDA-Public Use
  Company Number: 001685

PATIENT
  Sex: Female

DRUGS (2)
  1. TAMOXIFEN CITRATE [Suspect]
  2. ARIMIDEX [Suspect]

REACTIONS (2)
  - HYSTERECTOMY [None]
  - UTERINE DISORDER [None]
